FAERS Safety Report 5827843-1 (Version None)
Quarter: 2008Q3

REPORT INFORMATION
  Report Type: 
  Country: None (occurrence: None)
  Receive Date: 20080728
  Receipt Date: 20080717
  Transmission Date: 20090109
  Serious: Yes (Hospitalization)
  Sender: FDA-Public Use
  Company Number: 89259

PATIENT
  Age: 73 Year
  Sex: Female
  Weight: 57.9 kg

DRUGS (16)
  1. CETIRIZINE [Suspect]
     Dosage: 10MG/ 1 1DAYS/ ORAL
     Route: 048
     Dates: end: 20080620
  2. CALCICHEW D3 [Concomitant]
  3. CODEINE SUL TAB [Concomitant]
  4. CYCLIZINE [Concomitant]
  5. CYCLIZINE [Concomitant]
  6. CYCLIZINE [Concomitant]
  7. CYCLIZINE [Concomitant]
  8. CYCLIZINE [Concomitant]
  9. CYCLIZINE [Concomitant]
  10. MAGNESIUM HYDROXIDE TAB [Concomitant]
  11. MOVICOL [Concomitant]
  12. NICOTINE [Concomitant]
  13. ACETAMINOPHEN [Concomitant]
  14. SENNA [Concomitant]
  15. SIMVASTATIN [Concomitant]
  16. TROSPIUM CHLORIDE [Concomitant]

REACTIONS (1)
  - PLATELET COUNT INCREASED [None]
